FAERS Safety Report 9896040 (Version 2)
Quarter: 2014Q1

REPORT INFORMATION
  Report Type: Spontaneous
  Country: US (occurrence: US)
  Receive Date: 20140213
  Receipt Date: 20140213
  Transmission Date: 20141002
  Serious: No
  Sender: FDA-Public Use
  Company Number: US-BRISTOL-MYERS SQUIBB COMPANY-19014356

PATIENT
  Age: 59 Year
  Sex: Female
  Weight: 59.41 kg

DRUGS (10)
  1. ABATACEPT SUBQ INJECTION 125MG/ML [Suspect]
     Indication: RHEUMATOID ARTHRITIS
     Dosage: 1DF: 125MG/ML
     Route: 058
  2. PLAQUENIL [Concomitant]
     Dosage: TABS
  3. PRILOSEC [Concomitant]
     Dosage: CAP
  4. MIRAPEX [Concomitant]
     Dosage: MIRAPEX ER TABS 0.375 MG
  5. PREDNISONE [Concomitant]
  6. FOLIC ACID [Concomitant]
     Dosage: CAPS
  7. MUCINEX [Concomitant]
     Dosage: 1DF:120-1200 UNITS NOS TABS
  8. METHOTREXATE [Concomitant]
     Dosage: TABS
  9. METHYLPREDNISONE [Concomitant]
     Dosage: TABS
  10. FOLIC ACID [Concomitant]
     Dosage: CAPS

REACTIONS (3)
  - Emotional disorder [Unknown]
  - Rhinorrhoea [Unknown]
  - Cough [Unknown]
